FAERS Safety Report 5625304-6 (Version None)
Quarter: 2008Q1

REPORT INFORMATION
  Report Type: 
  Country: None (occurrence: None)
  Receive Date: 20080213
  Receipt Date: 20080204
  Transmission Date: 20080703
  Serious: Yes (Hospitalization, Other)
  Sender: FDA-Public Use
  Company Number: PHNU2008DE00811

PATIENT
  Age: 37 Year
  Sex: Male

DRUGS (3)
  1. VOLTAREN [Suspect]
     Indication: POLYARTHRITIS
     Dosage: 1 DF, QD
     Route: 048
     Dates: start: 20040913
  2. NEXIUM [Suspect]
     Indication: REFLUX OESOPHAGITIS
     Dosage: 40 MG, QD
     Route: 065
     Dates: start: 20040913
  3. ALLOPURINOL [Suspect]
     Indication: HYPERURICAEMIA
     Dosage: 300 MG, QD
     Route: 065
     Dates: start: 20040917

REACTIONS (8)
  - BLISTER [None]
  - CONJUNCTIVITIS [None]
  - HYPERURICAEMIA [None]
  - MUCOSAL EROSION [None]
  - PAIN OF SKIN [None]
  - PRURITUS [None]
  - RASH [None]
  - STEVENS-JOHNSON SYNDROME [None]
